FAERS Safety Report 8436932-7 (Version None)
Quarter: 2012Q2

REPORT INFORMATION
  Report Type: 
  Country: None (occurrence: None)
  Receive Date: 20120614
  Receipt Date: 20111223
  Transmission Date: 20120825
  Serious: No
  Sender: FDA-Public Use
  Company Number: US-AMGEN-USASP2011068927

PATIENT
  Age: 82 Year
  Sex: Male

DRUGS (10)
  1. BUMEX [Concomitant]
  2. LEUCOVORIN CALCIUM [Concomitant]
  3. METOPROLOL TARTRATE [Concomitant]
  4. DILTIAZEM [Concomitant]
  5. ZOCOR [Concomitant]
  6. DUONEB [Concomitant]
  7. ASPIRIN [Concomitant]
  8. GABAPENTIN [Concomitant]
  9. HYDROCODONE [Concomitant]
  10. ARANESP [Suspect]
     Indication: RENAL FAILURE CHRONIC
     Dosage: 60 MUG, UNK
     Dates: start: 20111223

REACTIONS (1)
  - EXPIRED DRUG ADMINISTERED [None]
